FAERS Safety Report 14689592 (Version 1)
Quarter: 2018Q1

REPORT INFORMATION
  Report Type: Spontaneous
  Country: RO (occurrence: RO)
  Receive Date: 20180328
  Receipt Date: 20180328
  Transmission Date: 20180509
  Serious: Yes (Other)
  Sender: FDA-Public Use
  Company Number: RO-PFIZER INC-2018123773

PATIENT
  Age: 55 Year
  Sex: Male
  Weight: 82 kg

DRUGS (4)
  1. ETAMSILAT [Concomitant]
     Dosage: UNK, 2X/DAY (2 VIALS IN THE MORNING AND 2 VIALS IN THE EVENING)
  2. ADRENOSTAZIN [Concomitant]
     Dosage: UNK, 2X/DAY (2 VIALS IN THE MORNING AND 2 VIALS IN THE EVENING)
  3. VITAMIN K [Concomitant]
     Active Substance: PHYTONADIONE
     Dosage: UNK, 2X/DAY (2VIALS IN THE MORNING AND 2 VIALS IN THE EVENING)
  4. SUNITINIB MALATE. [Suspect]
     Active Substance: SUNITINIB MALATE
     Indication: RENAL CANCER METASTATIC
     Dosage: 50 MG, UNK
     Dates: end: 20180321

REACTIONS (2)
  - Alveolar lung disease [Unknown]
  - Haemoptysis [Unknown]

NARRATIVE: CASE EVENT DATE: 201803
